FAERS Safety Report 11595112 (Version 2)
Quarter: 2015Q4

REPORT INFORMATION
  Report Type: Spontaneous
  Country: DE (occurrence: DE)
  Receive Date: 20151006
  Receipt Date: 20151013
  Transmission Date: 20160304
  Serious: Yes (Hospitalization, Other)
  Sender: FDA-Public Use
  Company Number: DE-AMGEN-DEUSP2015103013

PATIENT
  Age: 51 Year
  Sex: Male

DRUGS (2)
  1. ENBREL [Suspect]
     Active Substance: ETANERCEPT
     Indication: PSORIATIC ARTHROPATHY
     Dosage: 50 MG, 1X/WEEK
     Route: 065
     Dates: start: 20150918, end: 2015
  2. CORTISON [Concomitant]
     Active Substance: CORTISONE ACETATE
     Dosage: UNK
     Dates: start: 20150922

REACTIONS (5)
  - Disorientation [Unknown]
  - Eye swelling [Unknown]
  - Hypersensitivity [Unknown]
  - Dizziness [Unknown]
  - Cerebrovascular accident [Unknown]

NARRATIVE: CASE EVENT DATE: 201509
